FAERS Safety Report 4842372-X (Version None)
Quarter: 2005Q4

REPORT INFORMATION
  Report Type: 
  Country: None (occurrence: None)
  Receive Date: 20051125
  Receipt Date: 20051111
  Transmission Date: 20060501
  Serious: Yes (Hospitalization, Other)
  Sender: FDA-Public Use
  Company Number: 2005154774

PATIENT
  Sex: Female
  Weight: 88.4514 kg

DRUGS (12)
  1. NEURONTIN [Suspect]
     Indication: NEURALGIA
     Dosage: 900 MG (300 MG, 3 IN 1 D), ORAL
     Route: 048
  2. DETROL [Suspect]
     Indication: BLADDER DISORDER
     Dosage: ORAL
     Route: 048
  3. OXYBUTYNIN CHLORIDE [Suspect]
     Indication: BLADDER DISORDER
     Dosage: TRANSDERMAL
     Route: 062
     Dates: start: 20050101
  4. DURAGESIC-100 [Concomitant]
  5. PLAVIX [Concomitant]
  6. LISINOPRIL [Concomitant]
  7. HUMALOG [Concomitant]
  8. SYNTHROID [Concomitant]
  9. RITALIN [Concomitant]
  10. ULTRAM [Concomitant]
  11. VICODIN [Concomitant]
  12. MAXALT [Concomitant]

REACTIONS (4)
  - CEREBROVASCULAR ACCIDENT [None]
  - CONDITION AGGRAVATED [None]
  - SPEECH DISORDER [None]
  - THERAPY NON-RESPONDER [None]
